FAERS Safety Report 8485323-1 (Version None)
Quarter: 2012Q3

REPORT INFORMATION
  Report Type: 
  Country: None (occurrence: None)
  Receive Date: 20120703
  Receipt Date: 20120621
  Transmission Date: 20120928
  Serious: Yes (Hospitalization)
  Sender: FDA-Public Use
  Company Number: JP-VERTEX PHARMACEUTICALS INC.-AE-2012-009393

PATIENT
  Age: 58 Year
  Sex: Male

DRUGS (8)
  1. TELAVIC (TELAPREVIR) [Suspect]
     Indication: HEPATITIS C
     Route: 048
     Dates: start: 20120418, end: 20120522
  2. OSTELUC [Concomitant]
     Route: 048
     Dates: start: 20120427
  3. PEGINTERFERON ALFA-2B [Concomitant]
     Indication: HEPATITIS C
     Route: 058
     Dates: start: 20120418, end: 20120522
  4. RIBAVIRIN [Concomitant]
     Route: 048
     Dates: start: 20120509, end: 20120522
  5. LANSOPRAZOLE [Concomitant]
     Route: 048
  6. RIBAVIRIN [Concomitant]
     Indication: HEPATITIS C
     Route: 048
     Dates: start: 20120418, end: 20120508
  7. LOBU [Concomitant]
     Route: 048
     Dates: start: 20120418
  8. URSO 250 [Concomitant]
     Route: 048

REACTIONS (3)
  - DRUG ERUPTION [None]
  - NAUSEA [None]
  - DECREASED APPETITE [None]
